FAERS Safety Report 8007906-5 (Version None)
Quarter: 2011Q4

REPORT INFORMATION
  Report Type: 
  Country: None (occurrence: None)
  Receive Date: 20111227
  Receipt Date: 20111219
  Transmission Date: 20120403
  Serious: Yes (Hospitalization)
  Sender: FDA-Public Use
  Company Number: GB-SANOFI-AVENTIS-2011SA083286

PATIENT
  Age: 69 Year
  Sex: Female

DRUGS (10)
  1. FUROSEMIDE [Concomitant]
     Route: 065
  2. TRIMETHOPRIM [Concomitant]
     Route: 048
  3. CHLOROQUINE PHOSPHATE [Suspect]
     Indication: SARCOIDOSIS
     Route: 048
     Dates: start: 20050101
  4. PREDNISOLONE [Concomitant]
     Indication: SARCOIDOSIS
     Route: 048
     Dates: start: 20050101
  5. DENOSUMAB [Suspect]
     Indication: OSTEOPOROSIS
     Route: 058
     Dates: start: 20111116, end: 20111116
  6. PROCHLORPERAZINE [Concomitant]
     Indication: NAUSEA
     Route: 048
  7. CALCIUM CARBONATE/SODIUM ALGINATE/SODIUM BICARBONATE [Concomitant]
     Route: 065
  8. ASPIRIN [Concomitant]
     Route: 065
  9. OMEPRAZOLE [Concomitant]
  10. ATORVASTATIN [Concomitant]
     Route: 065

REACTIONS (3)
  - GENERAL PHYSICAL HEALTH DETERIORATION [None]
  - RENAL FAILURE ACUTE [None]
  - ACUTE HEPATIC FAILURE [None]
